FAERS Safety Report 19190158 (Version 1)
Quarter: 2021Q2

REPORT INFORMATION
  Report Type: Spontaneous
  Country: US (occurrence: US)
  Receive Date: 20210428
  Receipt Date: 20210428
  Transmission Date: 20210717
  Serious: Yes (Hospitalization)
  Sender: FDA-Public Use
  Company Number: None

PATIENT
  Age: 60 Year
  Sex: Female

DRUGS (22)
  1. ARNUITY ELPT [Concomitant]
  2. INSULIN [Concomitant]
     Active Substance: INSULIN NOS
  3. ENBREL [Suspect]
     Active Substance: ETANERCEPT
     Indication: POLYARTHRITIS
     Dosage: ?          OTHER FREQUENCY:WEEKLY;?
     Route: 058
     Dates: start: 20180426
  4. ALPRAZOLAM. [Concomitant]
     Active Substance: ALPRAZOLAM
  5. ASPIRIN. [Concomitant]
     Active Substance: ASPIRIN
  6. FEROSOMIDE [Concomitant]
  7. METFORMIN [Concomitant]
     Active Substance: METFORMIN HYDROCHLORIDE
  8. CONTOUR [Concomitant]
  9. FENOFIBRATE. [Concomitant]
     Active Substance: FENOFIBRATE
  10. OFEV [Concomitant]
     Active Substance: NINTEDANIB
  11. AMLODIPINE [Concomitant]
     Active Substance: AMLODIPINE BESYLATE
  12. CETRIZINE [Concomitant]
     Active Substance: CETIRIZINE HYDROCHLORIDE
  13. LANTUS [Concomitant]
     Active Substance: INSULIN GLARGINE
  14. ALBUTEROL. [Concomitant]
     Active Substance: ALBUTEROL
  15. LANSOPRAZOLE. [Concomitant]
     Active Substance: LANSOPRAZOLE
  16. LEXAPRO [Concomitant]
     Active Substance: ESCITALOPRAM OXALATE
  17. LISINOPRIL. [Concomitant]
     Active Substance: LISINOPRIL
  18. CALCIFEROL [Concomitant]
  19. CYCLOBENZAPRINE. [Concomitant]
     Active Substance: CYCLOBENZAPRINE
  20. ESCITALOPRAM [Concomitant]
     Active Substance: ESCITALOPRAM OXALATE
  21. BENZONATATE. [Concomitant]
     Active Substance: BENZONATATE
  22. HUMALOG [Concomitant]
     Active Substance: INSULIN LISPRO

REACTIONS (1)
  - Respiratory disorder [None]

NARRATIVE: CASE EVENT DATE: 20210411
